FAERS Safety Report 19993912 (Version 1)
Quarter: 2021Q4

REPORT INFORMATION
  Report Type: Spontaneous
  Country: US (occurrence: US)
  Receive Date: 20211025
  Receipt Date: 20211025
  Transmission Date: 20220303
  Serious: No
  Sender: FDA-Public Use
  Company Number: US-JNJFOC-20211003894

PATIENT
  Age: 45 Year
  Sex: Female

DRUGS (1)
  1. STELARA [Suspect]
     Active Substance: USTEKINUMAB
     Indication: Crohn^s disease
     Route: 042

REACTIONS (13)
  - Throat tightness [Unknown]
  - Flushing [Unknown]
  - Photopsia [Unknown]
  - Erythema [Unknown]
  - Dyspnoea [Unknown]
  - Muscular weakness [Unknown]
  - Anxiety [Unknown]
  - Burning sensation [Unknown]
  - Asthenia [Unknown]
  - Influenza like illness [Unknown]
  - Myalgia [Unknown]
  - Nausea [Unknown]
  - Malaise [Unknown]
